FAERS Safety Report 17598986 (Version 1)
Quarter: 2020Q1

REPORT INFORMATION
  Report Type: Spontaneous
  Country: US (occurrence: US)
  Receive Date: 20200330
  Receipt Date: 20200330
  Transmission Date: 20200409
  Serious: No
  Sender: FDA-Public Use
  Company Number: None

PATIENT
  Age: 25 Year
  Sex: Female
  Weight: 92.25 kg

DRUGS (3)
  1. ELURYNG [Concomitant]
     Active Substance: ETHINYL ESTRADIOL\ETONOGESTREL
  2. LEXAPRO [Concomitant]
     Active Substance: ESCITALOPRAM OXALATE
  3. ELURYNG [Suspect]
     Active Substance: ETHINYL ESTRADIOL\ETONOGESTREL
     Indication: CONTRACEPTION

REACTIONS (1)
  - Hypomenorrhoea [None]

NARRATIVE: CASE EVENT DATE: 20200318
